FAERS Safety Report 9462667 (Version 1)
Quarter: 2013Q3

REPORT INFORMATION
  Report Type: Spontaneous
  Country: US (occurrence: US)
  Receive Date: 20130816
  Receipt Date: 20130816
  Transmission Date: 20140515
  Serious: Yes (Other)
  Sender: FDA-Public Use
  Company Number: US-ELI_LILLY_AND_COMPANY-US201308002339

PATIENT
  Age: 64 Year
  Sex: Female

DRUGS (6)
  1. HUMALOG LISPRO [Suspect]
     Indication: TYPE 1 DIABETES MELLITUS
     Dosage: 1 U, OTHER
     Dates: start: 1997
  2. HUMALOG LISPRO [Suspect]
     Dosage: 1 U, OTHER
  3. LANTUS [Suspect]
     Dosage: UNK, UNKNOWN
  4. SYNTHROID [Concomitant]
  5. LISINOPRIL [Concomitant]
  6. LIPITOR [Concomitant]

REACTIONS (2)
  - Wrong drug administered [Unknown]
  - Wrong drug administered [Unknown]
